FAERS Safety Report 12631294 (Version 2)
Quarter: 2016Q3

REPORT INFORMATION
  Report Type: Spontaneous
  Country: US (occurrence: US)
  Receive Date: 20160808
  Receipt Date: 20160808
  Transmission Date: 20161109
  Serious: No
  Sender: FDA-Public Use
  Company Number: US-BEH-2015053186

PATIENT
  Sex: Female
  Weight: 54 kg

DRUGS (10)
  1. ACETAMINOPHEN. [Concomitant]
     Active Substance: ACETAMINOPHEN
  2. HIZENTRA [Suspect]
     Active Substance: HUMAN IMMUNOGLOBULIN G
     Route: 058
  3. EPIPEN [Concomitant]
     Active Substance: EPINEPHRINE
     Indication: ANAPHYLACTIC REACTION
  4. HIZENTRA [Suspect]
     Active Substance: HUMAN IMMUNOGLOBULIN G
     Indication: HYPER IGM SYNDROME
     Route: 058
  5. DULERA [Concomitant]
     Active Substance: FORMOTEROL FUMARATE DIHYDRATE\MOMETASONE FUROATE
  6. LMX [Concomitant]
     Active Substance: LIDOCAINE
  7. PROAIR HFA [Concomitant]
     Active Substance: ALBUTEROL SULFATE
  8. ESTRADIOL. [Concomitant]
     Active Substance: ESTRADIOL
  9. TOPAMAX [Concomitant]
     Active Substance: TOPIRAMATE
  10. DIPHENHYDRAMINE. [Concomitant]
     Active Substance: DIPHENHYDRAMINE

REACTIONS (7)
  - Infusion site swelling [Unknown]
  - Infusion site erythema [Unknown]
  - Infusion site extravasation [Unknown]
  - Rash [Unknown]
  - Infusion site warmth [Unknown]
  - Chills [Unknown]
  - Infusion site inflammation [Unknown]
